FAERS Safety Report 7753190-7 (Version None)
Quarter: 2011Q3

REPORT INFORMATION
  Report Type: 
  Country: None (occurrence: None)
  Receive Date: 20110915
  Receipt Date: 20110908
  Transmission Date: 20111222
  Serious: Yes (Other)
  Sender: FDA-Public Use
  Company Number: PHHY2011BR80340

PATIENT
  Sex: Male
  Weight: 95 kg

DRUGS (1)
  1. EXELON [Suspect]
     Indication: ANXIETY
     Dosage: 18MG/10CM2  (1 PATCH DAILY)
     Route: 062

REACTIONS (7)
  - WEIGHT INCREASED [None]
  - DRUG INEFFECTIVE [None]
  - ABASIA [None]
  - SPEECH DISORDER [None]
  - DISORIENTATION [None]
  - GENERAL PHYSICAL CONDITION ABNORMAL [None]
  - ASTHENIA [None]
